FAERS Safety Report 4435373-7 (Version None)
Quarter: 2004Q3

REPORT INFORMATION
  Report Type: 
  Country: None (occurrence: None)
  Receive Date: 20040826
  Receipt Date: 20040818
  Transmission Date: 20050211
  Serious: Yes (Other)
  Sender: FDA-Public Use
  Company Number: 2004204591GB

PATIENT
  Age: 56 Year
  Sex: Male

DRUGS (6)
  1. CAVERJECT [Suspect]
     Indication: ERECTILE DYSFUNCTION
     Dosage: 1000 UG, INT CORP CAVERN
  2. ACETYLSALICYLIC ACID [Concomitant]
  3. INDAPAMIDE [Concomitant]
  4. ENALAPRIL MALEATE [Concomitant]
  5. VERAPAMIL [Concomitant]
  6. HUMULINE (INSULIN HUMAN, INSULIN HUMAN INJECTION, ISOPHANE) [Concomitant]

REACTIONS (2)
  - ILIAC VEIN THROMBOSIS [None]
  - VENA CAVA THROMBOSIS [None]
